FAERS Safety Report 22260563 (Version 1)
Quarter: 2023Q2

REPORT INFORMATION
  Report Type: Spontaneous
  Country: US (occurrence: None)
  Receive Date: 20230425
  Receipt Date: 20230425
  Transmission Date: 20230721
  Serious: No
  Sender: FDA-Public Use
  Company Number: None

PATIENT
  Sex: Male

DRUGS (1)
  1. STELARA [Suspect]
     Active Substance: USTEKINUMAB
     Indication: Psoriasis
     Dosage: 90MG EVERY 12 WEEKS  NJECTION ?
     Route: 050
     Dates: start: 20220908

REACTIONS (2)
  - Therapeutic product effect incomplete [None]
  - Psoriasis [None]
